FAERS Safety Report 12303983 (Version 1)
Quarter: 2016Q2

REPORT INFORMATION
  Report Type: Spontaneous
  Country: US (occurrence: None)
  Receive Date: 20160425
  Receipt Date: 20160425
  Transmission Date: 20160815
  Serious: No
  Sender: FDA-Public Use
  Company Number: None

PATIENT
  Age: 47 Year
  Sex: Female
  Weight: 111.13 kg

DRUGS (7)
  1. BELSOMRA [Suspect]
     Active Substance: SUVOREXANT
     Indication: INSOMNIA
     Route: 048
     Dates: start: 20160420, end: 20160422
  2. LEVEMIR PENFILL [Concomitant]
     Active Substance: INSULIN DETEMIR
  3. ONCE DAILY MULTIVITAMIN [Concomitant]
  4. HUMALOG [Concomitant]
     Active Substance: INSULIN LISPRO
  5. NEXIUM [Concomitant]
     Active Substance: ESOMEPRAZOLE MAGNESIUM
  6. KWIK PEN [Concomitant]
  7. METOPROLOL. [Concomitant]
     Active Substance: METOPROLOL

REACTIONS (8)
  - Chest pain [None]
  - Headache [None]
  - Sudden onset of sleep [None]
  - Chromatopsia [None]
  - Abdominal pain upper [None]
  - Pain [None]
  - Dry mouth [None]
  - Insomnia [None]

NARRATIVE: CASE EVENT DATE: 20160420
